FAERS Safety Report 13055929 (Version 1)
Quarter: 2016Q4

REPORT INFORMATION
  Report Type: Spontaneous
  Country: JP (occurrence: JP)
  Receive Date: 20161222
  Receipt Date: 20161222
  Transmission Date: 20170207
  Serious: Yes (Life-Threatening, Other)
  Sender: FDA-Public Use
  Company Number: JP-BRISTOL-MYERS SQUIBB COMPANY-BMS-2014-000508

PATIENT
  Age: 61 Year
  Sex: Female
  Weight: 37.6 kg

DRUGS (33)
  1. ABILIFY [Suspect]
     Active Substance: ARIPIPRAZOLE
     Indication: SCHIZOPHRENIA
     Dosage: 24 MG, QD
     Route: 048
     Dates: start: 20140526, end: 20141017
  2. ABILIFY [Suspect]
     Active Substance: ARIPIPRAZOLE
     Indication: PRODUCT USED FOR UNKNOWN INDICATION
     Dosage: 12 MG, QD
     Route: 048
     Dates: start: 20141108, end: 20141205
  3. BROMPERIDOL [Suspect]
     Active Substance: BROMPERIDOL
     Indication: PRODUCT USED FOR UNKNOWN INDICATION
     Dosage: 12 MG, QD
     Route: 048
     Dates: start: 20141129, end: 20141213
  4. EMILACE [Concomitant]
     Indication: PRODUCT USED FOR UNKNOWN INDICATION
     Dosage: 9 MG, QD
     Route: 048
     Dates: start: 20140920, end: 20140926
  5. EMILACE [Concomitant]
     Indication: PRODUCT USED FOR UNKNOWN INDICATION
     Dosage: 6 MG, QD
     Route: 048
     Dates: start: 20140927, end: 20141003
  6. ABILIFY [Suspect]
     Active Substance: ARIPIPRAZOLE
     Indication: SCHIZOPHRENIA
     Dosage: 6 MG, QD
     Route: 048
     Dates: start: 20141206, end: 20141213
  7. IMPROMEN [Suspect]
     Active Substance: BROMPERIDOL
     Indication: PRODUCT USED FOR UNKNOWN INDICATION
     Dosage: 18 MG, QD
     Route: 048
     Dates: start: 20141214
  8. EMILACE [Concomitant]
     Indication: PRODUCT USED FOR UNKNOWN INDICATION
     Dosage: 18 MG, QD
     Route: 048
     Dates: start: 20140910, end: 20140919
  9. LORAZEPAM. [Concomitant]
     Active Substance: LORAZEPAM
     Indication: PRODUCT USED FOR UNKNOWN INDICATION
     Dosage: 1.5 MG, QD
     Route: 048
     Dates: start: 20130516, end: 20141003
  10. ABILIFY [Suspect]
     Active Substance: ARIPIPRAZOLE
     Indication: PRODUCT USED FOR UNKNOWN INDICATION
     Dosage: 18 MG, UNK
     Route: 048
     Dates: start: 20141018, end: 20141107
  11. BROMPERIDOL [Suspect]
     Active Substance: BROMPERIDOL
     Indication: SCHIZOPHRENIA
     Dosage: 36 MG, QD
     Route: 048
     Dates: start: 20131112, end: 20141003
  12. BROMPERIDOL [Suspect]
     Active Substance: BROMPERIDOL
     Indication: PRODUCT USED FOR UNKNOWN INDICATION
     Dosage: 24 MG, QD
     Route: 048
     Dates: start: 20141004, end: 20141010
  13. BROMPERIDOL [Suspect]
     Active Substance: BROMPERIDOL
     Indication: PRODUCT USED FOR UNKNOWN INDICATION
     Dosage: 18 MG, QD
     Route: 048
     Dates: start: 20141214, end: 20150208
  14. BROMPERIDOL [Suspect]
     Active Substance: BROMPERIDOL
     Indication: PRODUCT USED FOR UNKNOWN INDICATION
     Dosage: 3 MG, QD
     Route: 065
  15. IMPROMEN [Suspect]
     Active Substance: BROMPERIDOL
     Indication: SCHIZOPHRENIA
     Dosage: 36 MG, QD
     Route: 048
     Dates: start: 20131112, end: 20141003
  16. IMPROMEN [Suspect]
     Active Substance: BROMPERIDOL
     Indication: PRODUCT USED FOR UNKNOWN INDICATION
     Dosage: 18 MG, QD
     Route: 048
     Dates: start: 20141011, end: 20141024
  17. IMPROMEN [Suspect]
     Active Substance: BROMPERIDOL
     Indication: PRODUCT USED FOR UNKNOWN INDICATION
     Dosage: 12 MG, QD
     Route: 048
     Dates: start: 20141129, end: 20141213
  18. LORAZEPAM. [Concomitant]
     Active Substance: LORAZEPAM
     Indication: PRODUCT USED FOR UNKNOWN INDICATION
     Dosage: 6 MG, QD
     Route: 048
     Dates: start: 20141018
  19. OLANZAPINE. [Concomitant]
     Active Substance: OLANZAPINE
     Indication: PRODUCT USED FOR UNKNOWN INDICATION
     Dosage: 10 MG, QD
     Route: 065
  20. BROMPERIDOL [Suspect]
     Active Substance: BROMPERIDOL
     Indication: PRODUCT USED FOR UNKNOWN INDICATION
     Dosage: 18 MG, QD
     Route: 048
     Dates: start: 20141011, end: 20141024
  21. BROMPERIDOL [Suspect]
     Active Substance: BROMPERIDOL
     Indication: PRODUCT USED FOR UNKNOWN INDICATION
     Dosage: 12 MG, QD
     Route: 048
     Dates: start: 20141025, end: 20141031
  22. IMPROMEN [Suspect]
     Active Substance: BROMPERIDOL
     Indication: PRODUCT USED FOR UNKNOWN INDICATION
     Dosage: 6 MG, QD
     Route: 048
     Dates: start: 20141101, end: 20141128
  23. OLANZAPINE. [Concomitant]
     Active Substance: OLANZAPINE
     Indication: PRODUCT USED FOR UNKNOWN INDICATION
     Dosage: 5 MG, QD
     Route: 065
  24. FAMOTIDINE. [Suspect]
     Active Substance: FAMOTIDINE
     Indication: CHRONIC GASTRITIS
     Dosage: 20 MG, QD
     Route: 048
     Dates: start: 20090320, end: 20141010
  25. EMILACE [Concomitant]
     Indication: PRODUCT USED FOR UNKNOWN INDICATION
     Dosage: 27 MG, QD
     Route: 048
     Dates: start: 20140805, end: 20140909
  26. BROMPERIDOL [Suspect]
     Active Substance: BROMPERIDOL
     Indication: PRODUCT USED FOR UNKNOWN INDICATION
     Dosage: 6 MG, QD
     Route: 048
     Dates: start: 20141101, end: 20141128
  27. LORAZEPAM. [Concomitant]
     Active Substance: LORAZEPAM
     Indication: PRODUCT USED FOR UNKNOWN INDICATION
     Dosage: 3 MG, QD
     Route: 048
     Dates: start: 20141004, end: 20141017
  28. BROMPERIDOL [Suspect]
     Active Substance: BROMPERIDOL
     Indication: PRODUCT USED FOR UNKNOWN INDICATION
     Dosage: 18 MG, QD
     Route: 065
  29. MAGMITT [Concomitant]
     Active Substance: MAGNESIUM OXIDE
     Indication: PRODUCT USED FOR UNKNOWN INDICATION
     Dosage: UNK
     Route: 048
     Dates: start: 20111215
  30. BENZALIN [Concomitant]
     Active Substance: NITRAZEPAM
     Indication: PRODUCT USED FOR UNKNOWN INDICATION
     Dosage: 5 MG, QD
     Route: 048
     Dates: start: 20130311
  31. IMPROMEN [Suspect]
     Active Substance: BROMPERIDOL
     Indication: PRODUCT USED FOR UNKNOWN INDICATION
     Dosage: 24 MG, QD
     Route: 048
     Dates: start: 20141004, end: 20141010
  32. IMPROMEN [Suspect]
     Active Substance: BROMPERIDOL
     Indication: PRODUCT USED FOR UNKNOWN INDICATION
     Dosage: 12 MG, QD
     Route: 048
     Dates: start: 20141025, end: 20141031
  33. TSUMURA DAIKENCHUTO EXTRACT GRANULES [Concomitant]
     Active Substance: HERBALS
     Indication: PRODUCT USED FOR UNKNOWN INDICATION
     Dosage: 1 DF=3 PACKS, QD
     Route: 048
     Dates: start: 20121203, end: 20141213

REACTIONS (2)
  - Leukopenia [Recovering/Resolving]
  - Neutropenia [Recovering/Resolving]

NARRATIVE: CASE EVENT DATE: 20141001
